FAERS Safety Report 9322868 (Version 1)
Quarter: 2013Q2

REPORT INFORMATION
  Report Type: Spontaneous
  Country: GB (occurrence: GB)
  Receive Date: 20130602
  Receipt Date: 20130602
  Transmission Date: 20140414
  Serious: Yes (Other)
  Sender: FDA-Public Use
  Company Number: GB-BRISTOL-MYERS SQUIBB COMPANY-18964999

PATIENT
  Age: 32 Year
  Sex: Female
  Weight: 96.8 kg

DRUGS (5)
  1. EXENATIDE [Suspect]
     Indication: TYPE 2 DIABETES MELLITUS
     Dates: end: 20121114
  2. NOVORAPID [Concomitant]
  3. METFORMIN [Concomitant]
  4. FOLIC ACID [Concomitant]
  5. INSULATARD HM [Concomitant]

REACTIONS (2)
  - Abortion induced [Recovered/Resolved]
  - Pregnancy [Recovered/Resolved]
